FAERS Safety Report 8026418-6 (Version None)
Quarter: 2012Q1

REPORT INFORMATION
  Report Type: 
  Country: None (occurrence: None)
  Receive Date: 20120105
  Receipt Date: 20120103
  Transmission Date: 20120608
  Serious: Yes (Hospitalization, Disabling, Other)
  Sender: FDA-Public Use
  Company Number: US-MERCK-1111USA01268

PATIENT
  Sex: Female

DRUGS (13)
  1. AMOXICILLIN [Suspect]
     Route: 065
  2. PEPCID [Suspect]
     Route: 048
     Dates: start: 20090701
  3. SPIRONOLACTONE [Concomitant]
     Route: 065
  4. FUROSEMIDE [Concomitant]
     Route: 065
  5. PRILOSEC [Suspect]
     Route: 048
     Dates: start: 20090901, end: 20090901
  6. PLAVIX [Concomitant]
     Route: 065
  7. ASPIRIN [Concomitant]
     Route: 065
  8. PEPCID [Suspect]
     Route: 048
     Dates: start: 20100101
  9. OMEPRAZOLE [Suspect]
     Route: 065
     Dates: start: 20090101
  10. LOVASTATIN [Concomitant]
     Route: 048
  11. MAALOX (ALUMINUM HYDROXIDE (+) MAGNESIUM HYDROXIDE) [Suspect]
     Indication: GASTROOESOPHAGEAL REFLUX DISEASE
     Route: 065
  12. LISINOPRIL [Concomitant]
     Indication: HYPERTENSION
     Route: 065
  13. DOCUSATE SODIUM [Concomitant]
     Route: 065

REACTIONS (11)
  - DEHYDRATION [None]
  - AGGRESSION [None]
  - GENERAL SYMPTOM [None]
  - DRUG HYPERSENSITIVITY [None]
  - DISBACTERIOSIS [None]
  - GASTRIC DISORDER [None]
  - DECREASED APPETITE [None]
  - DRUG INEFFECTIVE [None]
  - ELECTROLYTE IMBALANCE [None]
  - ABDOMINAL PAIN UPPER [None]
  - DRUG INTOLERANCE [None]
